FAERS Safety Report 8495152-0 (Version None)
Quarter: 2012Q2

REPORT INFORMATION
  Report Type: 
  Country: None (occurrence: None)
  Receive Date: 20120628
  Receipt Date: 20120618
  Transmission Date: 20120825
  Serious: Yes (Hospitalization, Other)
  Sender: FDA-Public Use
  Company Number: 2012P1042572

PATIENT
  Age: 33 Year
  Sex: Male

DRUGS (1)
  1. NAPROXEN [Suspect]
     Indication: MIGRAINE

REACTIONS (4)
  - ACUTE MYOCARDIAL INFARCTION [None]
  - DIZZINESS [None]
  - RASH PRURITIC [None]
  - RASH MACULO-PAPULAR [None]
